FAERS Safety Report 8026811-1 (Version None)
Quarter: 2011Q4

REPORT INFORMATION
  Report Type: 
  Country: None (occurrence: None)
  Receive Date: 20111130
  Receipt Date: 20110914
  Transmission Date: 20120403
  Serious: Yes (Hospitalization)
  Sender: FDA-Public Use
  Company Number: US201109003735

PATIENT
  Age: 69 Year
  Sex: Female

DRUGS (6)
  1. AVAPRO [Concomitant]
  2. ALLOPURINOL [Concomitant]
  3. VITAMIN D [Concomitant]
  4. BYETTA [Suspect]
     Indication: TYPE 2 DIABETES MELLITUS
     Dosage: 5 UG, BID, SUBCUTANEOUS. 10  UG, BID, SUBCUTANEOUS
     Route: 058
     Dates: start: 20060501, end: 20110913
  5. BYETTA [Suspect]
     Indication: TYPE 2 DIABETES MELLITUS
     Dosage: 5 UG, BID, SUBCUTANEOUS. 10  UG, BID, SUBCUTANEOUS
     Route: 058
     Dates: start: 20060408, end: 20060501
  6. POTASSIUM CITRATE [Concomitant]

REACTIONS (10)
  - WEIGHT DECREASED [None]
  - MALAISE [None]
  - VOMITING [None]
  - PALLOR [None]
  - NAUSEA [None]
  - BLOOD GLUCOSE INCREASED [None]
  - ASTHENIA [None]
  - INCREASED APPETITE [None]
  - DRUG INEFFECTIVE [None]
  - GLYCOSYLATED HAEMOGLOBIN INCREASED [None]
